FAERS Safety Report 4323478-0 (Version None)
Quarter: 2004Q1

REPORT INFORMATION
  Report Type: 
  Country: None (occurrence: None)
  Receive Date: 20040325
  Receipt Date: 20040218
  Transmission Date: 20041129
  Serious: Yes (Other)
  Sender: FDA-Public Use
  Company Number: PHBS2004JP02521

PATIENT
  Age: 75 Year
  Sex: Male

DRUGS (3)
  1. METOPROLOL [Suspect]
     Indication: CARDIOMYOPATHY
     Route: 048
  2. THEOPHYLLINE [Concomitant]
     Indication: ASTHMA
  3. LEUKOTRIENE RECEPTOR ANATGONIST [Concomitant]
     Indication: ASTHMA

REACTIONS (1)
  - ASTHMA [None]
